FAERS Safety Report 22959953 (Version 2)
Quarter: 2023Q4

REPORT INFORMATION
  Report Type: Other
  Country: NL (occurrence: NL)
  Receive Date: 20230920
  Receipt Date: 20231107
  Transmission Date: 20240109
  Serious: Yes (Hospitalization, Other)
  Sender: FDA-Public Use
  Company Number: NL-TOLMAR, INC.-23NL042976

PATIENT
  Age: 79 Year
  Sex: Male

DRUGS (4)
  1. ELIGARD [Suspect]
     Active Substance: LEUPROLIDE ACETATE
     Indication: Prostate cancer
     Dosage: 45 MILLIGRAM, Q 6 MONTH
     Route: 058
     Dates: start: 20180816
  2. ELIGARD [Suspect]
     Active Substance: LEUPROLIDE ACETATE
     Dosage: 45 MILLIGRAM, Q 6 MONTH
     Route: 058
     Dates: start: 20230830
  3. ELIGARD [Suspect]
     Active Substance: LEUPROLIDE ACETATE
     Indication: Prostate cancer
     Dosage: UNK
  4. UNSPECIFIED INGREDIENT [Suspect]
     Active Substance: UNSPECIFIED INGREDIENT
     Indication: Anaesthesia
     Dosage: UNK

REACTIONS (4)
  - Arteriosclerosis coronary artery [Recovered/Resolved with Sequelae]
  - Hallucination [Unknown]
  - Memory impairment [Recovered/Resolved with Sequelae]
  - Weight decreased [Unknown]

NARRATIVE: CASE EVENT DATE: 20230201
